FAERS Safety Report 14685774 (Version 1)
Quarter: 2018Q1

REPORT INFORMATION
  Report Type: Spontaneous
  Country: AU (occurrence: AU)
  Receive Date: 20180327
  Receipt Date: 20180327
  Transmission Date: 20180509
  Serious: Yes (Other)
  Sender: FDA-Public Use
  Company Number: AU-009507513-1803AUS010195

PATIENT
  Age: 79 Year
  Sex: Male

DRUGS (1)
  1. KEYTRUDA [Suspect]
     Active Substance: PEMBROLIZUMAB
     Indication: METASTATIC MALIGNANT MELANOMA
     Dosage: 2 MG/KG, Q3, HAD RECEIVED FIVE CYCLES
     Route: 042

REACTIONS (3)
  - Autoimmune hepatitis [Unknown]
  - Autoimmune endocrine disorder [Unknown]
  - Type 1 diabetes mellitus [Unknown]
